FAERS Safety Report 14702252 (Version 1)
Quarter: 2018Q2

REPORT INFORMATION
  Report Type: Spontaneous
  Country: CA (occurrence: CA)
  Receive Date: 20180401
  Receipt Date: 20180401
  Transmission Date: 20180711
  Serious: Yes (Other)
  Sender: FDA-Public Use
  Company Number: CA-TEVA-2018-CA-874396

PATIENT
  Sex: Female
  Weight: 26 kg

DRUGS (13)
  1. CYTARABINE INJECTION [Suspect]
     Active Substance: CYTARABINE
     Indication: LEUKAEMIA
     Route: 037
  2. FLUDARABINE [Concomitant]
     Active Substance: FLUDARABINE PHOSPHATE
  3. ETOPOSIDE INJECTION USP [Suspect]
     Active Substance: ETOPOSIDE
     Indication: LEUKAEMIA
     Route: 042
  4. IMATINIB MESYLATE. [Suspect]
     Active Substance: IMATINIB MESYLATE
     Indication: LEUKAEMIA
     Route: 048
  5. CYCLOPHOSPHAMIDE. [Suspect]
     Active Substance: CYCLOPHOSPHAMIDE
     Indication: LEUKAEMIA
     Route: 042
  6. IFOSFAMIDE FOR INJECTION USP [Suspect]
     Active Substance: IFOSFAMIDE
     Indication: LEUKAEMIA
     Route: 042
  7. METHOTREXATE. [Concomitant]
     Active Substance: METHOTREXATE
  8. VINCRISTINE SULFATE INJECTION USP [Concomitant]
     Active Substance: VINCRISTINE SULFATE
  9. DAUNOMYCIN [Suspect]
     Active Substance: DAUNORUBICIN
     Indication: LEUKAEMIA
     Route: 042
  10. CYCLOPHOSPHAMIDE. [Suspect]
     Active Substance: CYCLOPHOSPHAMIDE
     Route: 042
  11. L-ASPARAGINASE [Concomitant]
     Active Substance: ASPARAGINASE
  12. HYDROCORTISONE. [Suspect]
     Active Substance: HYDROCORTISONE
     Indication: LEUKAEMIA
     Route: 037
  13. METHOTREXATE. [Suspect]
     Active Substance: METHOTREXATE
     Indication: LEUKAEMIA
     Route: 037

REACTIONS (2)
  - Ejection fraction decreased [Unknown]
  - Cardiotoxicity [Unknown]
